FAERS Safety Report 10882379 (Version 4)
Quarter: 2017Q4

REPORT INFORMATION
  Report Type: Spontaneous
  Country: US (occurrence: US)
  Receive Date: 20150303
  Receipt Date: 20171119
  Transmission Date: 20180320
  Serious: Yes (Hospitalization, Other)
  Sender: FDA-Public Use
  Company Number: US-009507513-1502USA012361

PATIENT
  Sex: Female

DRUGS (3)
  1. ALENDRONATE SODIUM. [Suspect]
     Active Substance: ALENDRONATE SODIUM
     Indication: OSTEOPOROSIS
     Dosage: 70 MG, QW
     Route: 048
     Dates: start: 20081008, end: 20110916
  2. FOSAMAX [Suspect]
     Active Substance: ALENDRONATE SODIUM
     Indication: OSTEOPOROSIS
     Dosage: 70 MG, UNK
     Route: 048
     Dates: start: 200604, end: 2008
  3. ALENDRONATE SODIUM. [Suspect]
     Active Substance: ALENDRONATE SODIUM
     Indication: OSTEOPOROSIS
     Dosage: 70 MG, QW
     Route: 048
     Dates: start: 20100902, end: 201009

REACTIONS (11)
  - Fall [Unknown]
  - Femur fracture [Unknown]
  - Periodontal operation [Unknown]
  - Femur fracture [Unknown]
  - Colitis [Unknown]
  - Infection [Unknown]
  - Psoriasis [Unknown]
  - Appendicectomy [Unknown]
  - Low turnover osteopathy [Unknown]
  - Anaemia postoperative [Unknown]
  - Fungal skin infection [Unknown]

NARRATIVE: CASE EVENT DATE: 201110
